FAERS Safety Report 13740370 (Version 1)
Quarter: 2017Q3

REPORT INFORMATION
  Report Type: Spontaneous
  Country: US (occurrence: US)
  Receive Date: 20170710
  Receipt Date: 20170710
  Transmission Date: 20171127
  Serious: Yes (Hospitalization)
  Sender: FDA-Public Use
  Company Number: None

PATIENT
  Age: 73 Year
  Sex: Female
  Weight: 62.14 kg

DRUGS (11)
  1. RALOXIFENE. [Concomitant]
     Active Substance: RALOXIFENE
  2. LISINOPRIL. [Concomitant]
     Active Substance: LISINOPRIL
  3. DIPHENDYRAMINE/MAALOX/LIDOCAINE [Concomitant]
  4. TIOTROPIUM [Concomitant]
     Active Substance: TIOTROPIUM
  5. PEMBROLIZUMAB 200MG [Suspect]
     Active Substance: PEMBROLIZUMAB
     Indication: NON-SMALL CELL LUNG CANCER STAGE IIIA
     Dosage: Q21DAYS IV
     Route: 042
     Dates: start: 20170626
  6. CISPLATIN. [Suspect]
     Active Substance: CISPLATIN
     Indication: NON-SMALL CELL LUNG CANCER STAGE IIIA
     Dosage: D1/8 Q28DAYS X2 IV
     Route: 042
     Dates: start: 20170703
  7. MONTELUKAST [Concomitant]
     Active Substance: MONTELUKAST SODIUM
  8. OXYCODONE [Concomitant]
     Active Substance: OXYCODONE
  9. PROCHLORPERAZINE. [Concomitant]
     Active Substance: PROCHLORPERAZINE
  10. FLUTICASONE-SALMETEROL [Concomitant]
  11. TRAVOPROST. [Concomitant]
     Active Substance: TRAVOPROST

REACTIONS (2)
  - Diverticulitis [None]
  - Large intestine perforation [None]

NARRATIVE: CASE EVENT DATE: 20170709
